FAERS Safety Report 10420565 (Version 1)
Quarter: 2014Q2

REPORT INFORMATION
  Report Type: Spontaneous
  Country: US (occurrence: None)
  Receive Date: 20140627
  Receipt Date: 20140627
  Transmission Date: 20141212
  Serious: Yes (Other)
  Sender: FDA-Public Use
  Company Number: PHEH2013US012554

PATIENT
  Age: 66 Year
  Sex: Female

DRUGS (9)
  1. DIOVAN HCT (VALSARTAN, HYDROCHLOROTHIAZIDE) UNKNOWN [Suspect]
     Indication: HYPERTENSION
     Dosage: 1 DF (160/12.5MG), QD
     Route: 048
  2. LEVOTHYROXINE [Concomitant]
  3. KLOR-CON (POTASSIUM CHLORIDE) UNKNOWN [Concomitant]
  4. PRAVASTATIN SODIUM [Concomitant]
  5. LEXAPRO (ESCITALOPRAM OXALATE) [Concomitant]
  6. ZETIA (EZETIMIBE) [Concomitant]
  7. GLIMEPIRIDE [Concomitant]
  8. JANUVIA (SITAGLIPTIN PHOSPHATE) [Concomitant]
  9. METFORMIN [Concomitant]

REACTIONS (3)
  - Blood pressure increased [None]
  - Headache [None]
  - Wrong technique in drug usage process [None]
